FAERS Safety Report 10798203 (Version 3)
Quarter: 2015Q1

REPORT INFORMATION
  Report Type: Report from Study
  Country: UY (occurrence: AR)
  Receive Date: 20150216
  Receipt Date: 20150320
  Transmission Date: 20150721
  Serious: Yes (Hospitalization)
  Sender: FDA-Public Use
  Company Number: UY-ABBVIE-15P-168-1346180-00

PATIENT
  Sex: Male

DRUGS (2)
  1. ZEMPLAR [Suspect]
     Active Substance: PARICALCITOL
     Route: 065
  2. ZEMPLAR [Suspect]
     Active Substance: PARICALCITOL
     Indication: HYPERPARATHYROIDISM SECONDARY
     Route: 065
     Dates: start: 20141112

REACTIONS (2)
  - Parathyroid disorder [Recovering/Resolving]
  - Blood parathyroid hormone increased [Unknown]
